FAERS Safety Report 20977001 (Version 2)
Quarter: 2022Q3

REPORT INFORMATION
  Report Type: Spontaneous
  Country: BR (occurrence: BR)
  Receive Date: 20220617
  Receipt Date: 20220706
  Transmission Date: 20221026
  Serious: Yes (Life-Threatening, Other)
  Sender: FDA-Public Use
  Company Number: BR-AMERICAN REGENT INC-2022001641

PATIENT
  Sex: Female
  Weight: 53 kg

DRUGS (3)
  1. FERINJECT [Suspect]
     Active Substance: FERRIC CARBOXYMALTOSE
     Indication: Iron deficiency
     Dosage: 500 MILLIGRAM
  2. SYNTHROID [Concomitant]
     Active Substance: LEVOTHYROXINE SODIUM
     Indication: Hypothyroidism
     Dosage: 100 MICROGRAM, 1 IN 1 D
     Route: 065
  3. SERTRALINE HYDROCHLORIDE [Concomitant]
     Active Substance: SERTRALINE HYDROCHLORIDE
     Indication: Product used for unknown indication
     Dosage: 50 MILLIGRAM ALWAYS IN THE MORNING
     Route: 065

REACTIONS (17)
  - Terminal state [Unknown]
  - Sensory loss [Unknown]
  - Laryngeal oedema [Unknown]
  - Anaphylactic shock [Unknown]
  - Dyspnoea [Unknown]
  - Hypersensitivity [Unknown]
  - Stress [Unknown]
  - Temperature intolerance [Unknown]
  - Hyperhidrosis [Unknown]
  - Fear [Unknown]
  - Gait disturbance [Unknown]
  - Anxiety [Unknown]
  - Chest discomfort [Unknown]
  - Head discomfort [Unknown]
  - Chest pain [Unknown]
  - Headache [Unknown]
  - Product preparation issue [Unknown]
